FAERS Safety Report 6720681-7 (Version None)
Quarter: 2010Q2

REPORT INFORMATION
  Report Type: 
  Country: None (occurrence: None)
  Receive Date: 20100511
  Receipt Date: 20100510
  Transmission Date: 20101027
  Serious: Yes (Hospitalization)
  Sender: FDA-Public Use
  Company Number: FR-BRISTOL-MYERS SQUIBB COMPANY-14934814

PATIENT
  Age: 65 Year
  Sex: Male

DRUGS (5)
  1. IRBESARTAN [Suspect]
     Indication: HYPERTENSION
     Dates: start: 20080101, end: 20090101
  2. METFORMIN HCL [Suspect]
     Indication: DIABETES MELLITUS
     Dates: start: 20080101, end: 20090101
  3. CRESTOR [Suspect]
     Indication: HYPERCHOLESTEROLAEMIA
     Route: 048
     Dates: start: 20080101, end: 20090101
  4. ZANIDIP [Suspect]
     Route: 048
     Dates: start: 20080101, end: 20090101
  5. TEMERIT [Suspect]
     Indication: HYPERTENSION
     Dosage: 1 DF= HALF TABS
     Route: 048
     Dates: start: 20080101, end: 20090101

REACTIONS (1)
  - LEUKOCYTOCLASTIC VASCULITIS [None]
